FAERS Safety Report 10637775 (Version 1)
Quarter: 2014Q4

REPORT INFORMATION
  Report Type: Spontaneous
  Country: US (occurrence: US)
  Receive Date: 20141208
  Receipt Date: 20141208
  Transmission Date: 20150529
  Serious: No
  Sender: FDA-Public Use
  Company Number: US-BAYER-2014-179156

PATIENT
  Age: 54 Year
  Sex: Female
  Weight: 57.14 kg

DRUGS (10)
  1. MULTI-VIT [Concomitant]
     Active Substance: VITAMINS
     Indication: SUPPLEMENTATION THERAPY
     Dosage: 0.5 DF, QD
     Route: 048
     Dates: start: 201410
  2. ESTRADIOL HEMIHYDRATE [Suspect]
     Active Substance: ESTRADIOL HEMIHYDRATE
     Indication: HOT FLUSH
     Dosage: 1 DF, OW
     Route: 062
     Dates: start: 20141115
  3. PROGESTERONE. [Concomitant]
     Active Substance: PROGESTERONE
     Dosage: 100 MG, UNK
     Route: 067
     Dates: start: 20141111, end: 20141111
  4. MAGNESIUM [MAGNESIUM] [Concomitant]
     Indication: SUPPLEMENTATION THERAPY
     Dosage: 1 DF, QOD
     Route: 048
     Dates: start: 2013
  5. VITAMIN D [Concomitant]
     Active Substance: CHOLECALCIFEROL
     Indication: SUPPLEMENTATION THERAPY
     Dosage: 1 DF, QOD
     Route: 048
     Dates: start: 2013
  6. FISH OIL [Concomitant]
     Active Substance: FISH OIL
     Indication: SUPPLEMENTATION THERAPY
     Dosage: 1000 MG, QD
     Route: 048
     Dates: start: 2013
  7. ESTRADIOL HEMIHYDRATE [Suspect]
     Active Substance: ESTRADIOL HEMIHYDRATE
     Indication: HOT FLUSH
     Dosage: 1 DF, OW
     Route: 062
     Dates: start: 201305, end: 20141115
  8. PROGESTERONE. [Concomitant]
     Active Substance: PROGESTERONE
     Dosage: 100 MG, QD
     Route: 048
     Dates: start: 201305
  9. ESTRADIOL HEMIHYDRATE [Suspect]
     Active Substance: ESTRADIOL HEMIHYDRATE
     Indication: FATIGUE
  10. CALCIUM [CALCIUM] [Concomitant]
     Active Substance: CALCIUM
     Indication: SUPPLEMENTATION THERAPY
     Dosage: 1 DF, QOD
     Route: 048
     Dates: start: 2013

REACTIONS (5)
  - Vaginal haemorrhage [Not Recovered/Not Resolved]
  - Nausea [None]
  - Chills [None]
  - Decreased appetite [None]
  - Eructation [None]

NARRATIVE: CASE EVENT DATE: 20141126
